FAERS Safety Report 9276546 (Version 1)
Quarter: 2013Q2

REPORT INFORMATION
  Report Type: Spontaneous
  Country: US (occurrence: US)
  Receive Date: 20130507
  Receipt Date: 20130507
  Transmission Date: 20140414
  Serious: No
  Sender: FDA-Public Use
  Company Number: US-PFIZER INC-2013139952

PATIENT
  Age: 43 Year
  Sex: Male
  Weight: 74.83 kg

DRUGS (2)
  1. LYRICA [Suspect]
     Indication: LIGAMENT RUPTURE
     Dosage: UNK, 2X/DAY
     Route: 048
     Dates: start: 20130428
  2. CELEBREX [Concomitant]
     Dosage: UNK

REACTIONS (2)
  - Off label use [Not Recovered/Not Resolved]
  - Depression [Not Recovered/Not Resolved]
